FAERS Safety Report 6747132-0 (Version None)
Quarter: 2010Q2

REPORT INFORMATION
  Report Type: 
  Country: None (occurrence: None)
  Receive Date: 20100528
  Receipt Date: 20100518
  Transmission Date: 20101027
  Serious: Yes (Hospitalization)
  Sender: FDA-Public Use
  Company Number: ES-PFIZER INC-2010066983

PATIENT
  Age: 81 Year
  Sex: Male

DRUGS (9)
  1. CARDURA [Suspect]
     Indication: HYPERTENSION
     Dosage: 8 MG, UNK
     Route: 048
     Dates: start: 20080101, end: 20100226
  2. OLMESARTAN MEDOXOMIL [Interacting]
     Indication: HYPERTENSION
     Dosage: 10 MG, UNK
     Route: 048
     Dates: start: 20080101, end: 20100226
  3. FUROSEMIDE [Interacting]
     Indication: HYPERTENSION
     Dosage: 40 MG, UNK
     Route: 065
  4. BIPRETERAX [Interacting]
     Indication: DRUG USE FOR UNKNOWN INDICATION
     Dosage: 4/1.25 MG, UNK
     Route: 065
  5. OMEPRAZOLE [Concomitant]
     Indication: DRUG USE FOR UNKNOWN INDICATION
     Dosage: 20 MG, 1X/DAY
     Route: 065
  6. SIMVASTATIN [Concomitant]
     Indication: DRUG USE FOR UNKNOWN INDICATION
     Dosage: 10 MG, 1X/DAY
     Route: 048
  7. ADIRO [Concomitant]
     Indication: DRUG USE FOR UNKNOWN INDICATION
     Dosage: 100 MG, 1X/DAY
     Route: 048
  8. LORMETAZEPAM [Concomitant]
     Indication: HYPERTENSION
     Route: 048
  9. OMNIC [Concomitant]
     Indication: BENIGN PROSTATIC HYPERPLASIA
     Dosage: 0.4 MG, UNK
     Route: 048

REACTIONS (3)
  - DIZZINESS [None]
  - DRUG INTERACTION [None]
  - HYPOTENSION [None]
